FAERS Safety Report 6419800-1 (Version None)
Quarter: 2009Q4

REPORT INFORMATION
  Report Type: 
  Country: None (occurrence: None)
  Receive Date: 20091014
  Receipt Date: 20090729
  Transmission Date: 20100525
  Serious: Yes (Hospitalization)
  Sender: FDA-Public Use
  Company Number: IMP_04519_2009

PATIENT
  Sex: Female

DRUGS (7)
  1. BUDEPRION (NOT SPECIFIED) [Suspect]
     Indication: BIPOLAR DISORDER
     Dosage: 450 MG QD, 150 MG AND 300 MG EACH
     Dates: start: 20090101
  2. LAMOTRIGINE [Suspect]
     Indication: BIPOLAR DISORDER
     Dosage: 400 MG QD, 100 MG EACH ORAL
     Route: 048
     Dates: start: 20070101
  3. TOPIRAMATE [Suspect]
     Indication: BIPOLAR DISORDER
     Dosage: 100 MG QD, 25 MG EACH
  4. CLONAZEPAM [Concomitant]
  5. DOXEPIN HCL [Concomitant]
  6. GABAPENTIN [Concomitant]
  7. VYVANSE [Concomitant]

REACTIONS (7)
  - DEPRESSION [None]
  - DRUG INEFFECTIVE [None]
  - HEADACHE [None]
  - INTENTIONAL OVERDOSE [None]
  - PRODUCT QUALITY ISSUE [None]
  - SUICIDAL IDEATION [None]
  - SUICIDE ATTEMPT [None]
